FAERS Safety Report 17618861 (Version 1)
Quarter: 2020Q2

REPORT INFORMATION
  Report Type: Report from Study
  Country: ES (occurrence: ES)
  Receive Date: 20200402
  Receipt Date: 20200402
  Transmission Date: 20200713
  Serious: Yes (Life-Threatening, Hospitalization)
  Sender: FDA-Public Use
  Company Number: ES-BAUSCH-BL-2020-009110

PATIENT
  Age: 38 Year
  Sex: Male

DRUGS (6)
  1. DIAZEPAM. [Suspect]
     Active Substance: DIAZEPAM
     Indication: INTENTIONAL OVERDOSE
     Dosage: 1 TOTAL; 730A
     Route: 048
     Dates: start: 20191013, end: 20191013
  2. PREGABALINA [Interacting]
     Active Substance: PREGABALIN
     Indication: INTENTIONAL OVERDOSE
     Dosage: 1 TOTAL; 3897A
     Route: 048
     Dates: start: 20191013, end: 20191013
  3. QUETIAPINA [Interacting]
     Active Substance: QUETIAPINE
     Indication: SUICIDE ATTEMPT
     Dosage: 1 TOTAL; 1136A
     Route: 048
     Dates: start: 20191013, end: 20191013
  4. PREGABALINA [Concomitant]
     Active Substance: PREGABALIN
     Indication: PERSONALITY DISORDER
     Dosage: 3897A
     Route: 048
     Dates: start: 20140310, end: 20191012
  5. METILFENIDATO [Interacting]
     Active Substance: METHYLPHENIDATE
     Indication: INTENTIONAL OVERDOSE
     Dosage: 1 TOTAL; 3773A
     Route: 048
     Dates: start: 20191013, end: 20191013
  6. QUETIAPINA [Concomitant]
     Active Substance: QUETIAPINE
     Indication: PERSONALITY DISORDER
     Dosage: 1136A
     Route: 048
     Dates: start: 20160530, end: 20191012

REACTIONS (3)
  - Intentional overdose [Recovered/Resolved]
  - Respiratory depression [Recovered/Resolved]
  - Coma [Recovered/Resolved]

NARRATIVE: CASE EVENT DATE: 20191013
